FAERS Safety Report 5866158-2 (Version None)
Quarter: 2008Q3

REPORT INFORMATION
  Report Type: 
  Country: None (occurrence: None)
  Receive Date: 20080829
  Receipt Date: 20080826
  Transmission Date: 20090109
  Serious: Yes (Other)
  Sender: FDA-Public Use
  Company Number: US-MERCK-0807USA04803

PATIENT
  Age: 66 Year
  Sex: Female
  Weight: 74 kg

DRUGS (1)
  1. VYTORIN [Suspect]
     Route: 048
     Dates: start: 20061001

REACTIONS (1)
  - LUNG NEOPLASM MALIGNANT [None]
